FAERS Safety Report 4782581-1 (Version None)
Quarter: 2005Q3

REPORT INFORMATION
  Report Type: 
  Country: None (occurrence: None)
  Receive Date: 20050929
  Receipt Date: 20050404
  Transmission Date: 20060218
  Serious: No
  Sender: FDA-Public Use
  Company Number: 401305

PATIENT
  Age: 79 Year
  Sex: Male

DRUGS (4)
  1. COREG [Suspect]
     Dosage: 3.125MG TWICE PER DAY
     Route: 048
  2. ZOCOR [Concomitant]
  3. PRINIVIL [Concomitant]
  4. FELDENE [Concomitant]

REACTIONS (1)
  - HYPOAESTHESIA [None]
